FAERS Safety Report 13957525 (Version 1)
Quarter: 2017Q3

REPORT INFORMATION
  Report Type: Not Available
  Country: JP (occurrence: JP)
  Receive Date: 20170911
  Receipt Date: 20170911
  Transmission Date: 20171128
  Serious: Yes (Other)
  Sender: FDA-Public Use
  Company Number: JP-IDTAUSTRALIA-2017-JP-000057

PATIENT
  Age: 69 Year
  Sex: Male
  Weight: 53 kg

DRUGS (6)
  1. DEXAMETHASONE (NON-SPECIFIC) [Suspect]
     Active Substance: DEXAMETHASONE
     Dates: start: 2012
  2. WARFARIN [Suspect]
     Active Substance: WARFARIN
     Dosage: 2 MG/DAY
  3. ASPIRIN. [Suspect]
     Active Substance: ASPIRIN
     Dates: start: 201603
  4. BORTEZOMIB [Suspect]
     Active Substance: BORTEZOMIB
     Dates: start: 2012
  5. LENALIDOMIDE [Suspect]
     Active Substance: LENALIDOMIDE
     Dosage: 25 MG/DAY
     Dates: start: 201603
  6. FLUCONAZOLE (NON-SPECIFIC) [Suspect]
     Active Substance: FLUCONAZOLE

REACTIONS (5)
  - Deep vein thrombosis [Unknown]
  - Pulmonary artery thrombosis [Unknown]
  - Neuropathy peripheral [Unknown]
  - Drug interaction [Unknown]
  - International normalised ratio increased [Unknown]
